FAERS Safety Report 11214708 (Version 2)
Quarter: 2015Q3

REPORT INFORMATION
  Report Type: Spontaneous
  Country: BR (occurrence: BR)
  Receive Date: 20150624
  Receipt Date: 20150709
  Transmission Date: 20151125
  Serious: Yes (Hospitalization, Other)
  Sender: FDA-Public Use
  Company Number: BR-JAZZ-2015-BR-008943

PATIENT
  Age: 59 Year
  Sex: Female

DRUGS (11)
  1. DEXAMETHASONE. [Suspect]
     Active Substance: DEXAMETHASONE
     Dosage: INTRATHECAL CHEMOTHERAPY
  2. VINCRISTINE [Suspect]
     Active Substance: VINCRISTINE
     Dosage: RE-INDUCTION THERAPY
     Dates: start: 201406
  3. DEXAMETHASONE. [Suspect]
     Active Substance: DEXAMETHASONE
     Indication: ACUTE LYMPHOCYTIC LEUKAEMIA
     Dosage: HYPERCVAD REGIMEN
     Dates: start: 201401, end: 201403
  4. DEXAMETHASONE. [Suspect]
     Active Substance: DEXAMETHASONE
     Dosage: RE-INDUCTION THERAPY
     Dates: start: 201406, end: 201406
  5. ERWINASE [Suspect]
     Active Substance: ASPARAGINASE ERWINIA CHRYSANTHEMI
     Indication: ACUTE LYMPHOCYTIC LEUKAEMIA
     Dosage: UNK
     Dates: start: 201406
  6. VINCRISTINE [Suspect]
     Active Substance: VINCRISTINE
     Indication: ACUTE LYMPHOCYTIC LEUKAEMIA
     Dosage: HYPERCVAD REGIMEN
     Dates: start: 201401, end: 201403
  7. DOXORUBICIN [Suspect]
     Active Substance: DOXORUBICIN
     Indication: ACUTE LYMPHOCYTIC LEUKAEMIA
     Dosage: HYPERCVAD REGIMEN
     Dates: start: 201401, end: 201403
  8. DOXORUBICIN [Suspect]
     Active Substance: DOXORUBICIN
     Dosage: RE-INDUCTION THERAPY
     Dates: start: 201406
  9. CYCLOPHOSPHAMIDE. [Suspect]
     Active Substance: CYCLOPHOSPHAMIDE
     Indication: ACUTE LYMPHOCYTIC LEUKAEMIA
     Dosage: HYPERCVAD REGIMEN
     Dates: start: 201401, end: 201403
  10. CYTARABINE. [Suspect]
     Active Substance: CYTARABINE
     Dosage: INTRATHECAL CHEMOTHERAPY
  11. METHOTREXATE [Suspect]
     Active Substance: METHOTREXATE
     Dosage: INTRATHECAL CHEMOTHERAPY

REACTIONS (2)
  - Haematotoxicity [Unknown]
  - Retinal vein occlusion [Not Recovered/Not Resolved]

NARRATIVE: CASE EVENT DATE: 201407
